FAERS Safety Report 6162344-5 (Version None)
Quarter: 2009Q2

REPORT INFORMATION
  Report Type: 
  Country: None (occurrence: None)
  Receive Date: 20090421
  Receipt Date: 20090326
  Transmission Date: 20091009
  Serious: No
  Sender: FDA-Public Use
  Company Number: US-B.I. PHARMACEUTICALS,INC./RIDGEFIELD-2009-BP-03804BP

PATIENT
  Sex: Female
  Weight: 83.9 kg

DRUGS (9)
  1. MOBIC [Suspect]
     Indication: HIP SWELLING
     Dosage: 15MG
     Route: 048
     Dates: start: 20090218, end: 20090306
  2. MOBIC [Suspect]
     Indication: ARTHRITIS
  3. MOBIC [Suspect]
     Indication: ARTHRALGIA
  4. ZOLOFT [Suspect]
     Indication: DEPRESSION
     Dosage: 50MG
     Route: 048
  5. SKELAXIN [Suspect]
     Indication: HIP SWELLING
     Dosage: 800MG
     Route: 048
     Dates: start: 20090201
  6. SKELAXIN [Suspect]
     Indication: ARTHRITIS
  7. SKELAXIN [Suspect]
     Indication: ARTHRALGIA
  8. ACCOLATE [Concomitant]
  9. VITAMINS [Concomitant]

REACTIONS (4)
  - ABNORMAL BEHAVIOUR [None]
  - DRUG INEFFECTIVE [None]
  - MUSCLE SPASMS [None]
  - SOMNOLENCE [None]
